FAERS Safety Report 11195796 (Version 1)
Quarter: 2015Q2

REPORT INFORMATION
  Report Type: Report from Study
  Country: GB (occurrence: GB)
  Receive Date: 20150617
  Receipt Date: 20150617
  Transmission Date: 20150821
  Serious: Yes (Other)
  Sender: FDA-Public Use
  Company Number: GB-BAYER-2015-319963

PATIENT
  Sex: Female

DRUGS (1)
  1. MIRENA [Suspect]
     Active Substance: LEVONORGESTREL
     Dosage: 20 MCG/24HR, CONT
     Route: 015
     Dates: start: 201403

REACTIONS (4)
  - Menstruation irregular [None]
  - Endometriosis [None]
  - Abdominal adhesions [None]
  - Pain [None]

NARRATIVE: CASE EVENT DATE: 201406
